FAERS Safety Report 7981343-1 (Version None)
Quarter: 2011Q4

REPORT INFORMATION
  Report Type: 
  Country: None (occurrence: None)
  Receive Date: 20111212
  Receipt Date: 20111129
  Transmission Date: 20120403
  Serious: Yes (Hospitalization)
  Sender: FDA-Public Use
  Company Number: AUR-APL-2011-05854

PATIENT
  Age: 49 Year
  Sex: Female

DRUGS (7)
  1. SEROQUEL [Concomitant]
  2. MIRTAZAPINE [Suspect]
     Indication: PRODUCT USED FOR UNKNOWN INDICATION
     Dosage: (15 MG, 1 D), ORAL, (30 MG, 1 D), ORAL, (45 MG, 1 D), ORAL, (15 MG, 1 D), ORAL
     Route: 048
     Dates: start: 20101206, end: 20101210
  3. MIRTAZAPINE [Suspect]
     Indication: PRODUCT USED FOR UNKNOWN INDICATION
     Dosage: (15 MG, 1 D), ORAL, (30 MG, 1 D), ORAL, (45 MG, 1 D), ORAL, (15 MG, 1 D), ORAL
     Route: 048
     Dates: start: 20101207, end: 20101208
  4. MIRTAZAPINE [Suspect]
     Indication: PRODUCT USED FOR UNKNOWN INDICATION
     Dosage: (15 MG, 1 D), ORAL, (30 MG, 1 D), ORAL, (45 MG, 1 D), ORAL, (15 MG, 1 D), ORAL
     Route: 048
     Dates: start: 20101119, end: 20101206
  5. MIRTAZAPINE [Suspect]
     Indication: PRODUCT USED FOR UNKNOWN INDICATION
     Dosage: (15 MG, 1 D), ORAL, (30 MG, 1 D), ORAL, (45 MG, 1 D), ORAL, (15 MG, 1 D), ORAL
     Route: 048
     Dates: start: 20101111, end: 20101118
  6. RAMIPRIL [Suspect]
     Indication: PRODUCT USED FOR UNKNOWN INDICATION
     Dosage: 2.5 MG (2.5 MG, 1 IN 1 D), ORAL
     Route: 048
     Dates: start: 20101206, end: 20101210
  7. PANTOPRAZOLE SODIUM [Concomitant]

REACTIONS (7)
  - PAIN IN EXTREMITY [None]
  - SKIN TIGHTNESS [None]
  - RESTLESSNESS [None]
  - TACHYCARDIA [None]
  - OEDEMA PERIPHERAL [None]
  - PARAESTHESIA [None]
  - BLISTER [None]
